FAERS Safety Report 9085728 (Version 1)
Quarter: 2013Q1

REPORT INFORMATION
  Report Type: Spontaneous
  Country: US (occurrence: US)
  Receive Date: 20130131
  Receipt Date: 20130131
  Transmission Date: 20140127
  Serious: No
  Sender: FDA-Public Use
  Company Number: US-B.I. PHARMACEUTICALS,INC./RIDGEFIELD-2013-BI-02321BP

PATIENT
  Sex: Male

DRUGS (4)
  1. SPIRIVA [Suspect]
     Indication: EMPHYSEMA
     Dosage: 18 MCG
     Route: 055
     Dates: start: 2012
  2. ATROVENT [Suspect]
     Indication: RHINITIS ALLERGIC
     Dosage: 84 MCG
     Route: 045
     Dates: start: 2012
  3. ATROVENT [Suspect]
     Indication: RHINORRHOEA
  4. VERAMYST [Concomitant]
     Indication: RHINITIS ALLERGIC
     Route: 045

REACTIONS (1)
  - Decreased bronchial secretion [Not Recovered/Not Resolved]
